FAERS Safety Report 23565631 (Version 1)
Quarter: 2024Q1

REPORT INFORMATION
  Report Type: Report from Study
  Country: US (occurrence: US)
  Receive Date: 20240226
  Receipt Date: 20240226
  Transmission Date: 20240409
  Serious: No
  Sender: FDA-Public Use
  Company Number: US-AGIOS-2402US03650

PATIENT
  Age: 30 Year
  Sex: Female

DRUGS (1)
  1. MITAPIVAT [Suspect]
     Active Substance: MITAPIVAT
     Indication: Haemolytic anaemia
     Dosage: 20 MILLIGRAM, BID
     Route: 048
     Dates: start: 20221202

REACTIONS (1)
  - Headache [Not Recovered/Not Resolved]
